FAERS Safety Report 13694414 (Version 1)
Quarter: 2017Q2

REPORT INFORMATION
  Report Type: Spontaneous
  Country: US (occurrence: US)
  Receive Date: 20170627
  Receipt Date: 20170627
  Transmission Date: 20170830
  Serious: Yes (Other)
  Sender: FDA-Public Use
  Company Number: US-AMGEN-USASP2017094478

PATIENT
  Age: 72 Year
  Sex: Female

DRUGS (3)
  1. VITAMIN B3 [Concomitant]
     Active Substance: NIACIN
     Dosage: 2000 UNIT, UNK
  2. CALCIUM [Concomitant]
     Active Substance: CALCIUM
     Dosage: UNK
  3. PROLIA [Suspect]
     Active Substance: DENOSUMAB
     Indication: OSTEOPOROSIS
     Dosage: UNK
     Route: 065
     Dates: start: 2014

REACTIONS (4)
  - Foot fracture [Recovered/Resolved]
  - Heart valve calcification [Unknown]
  - Nephrolithiasis [Unknown]
  - Drug dose omission [Unknown]

NARRATIVE: CASE EVENT DATE: 201612
